FAERS Safety Report 21408292 (Version 2)
Quarter: 2022Q4

REPORT INFORMATION
  Report Type: Spontaneous
  Country: AT (occurrence: AT)
  Receive Date: 20221004
  Receipt Date: 20221121
  Transmission Date: 20230113
  Serious: Yes (Other)
  Sender: FDA-Public Use
  Company Number: AT-JNJFOC-20221004856

PATIENT
  Sex: Female

DRUGS (4)
  1. YONDELIS [Suspect]
     Active Substance: TRABECTEDIN
     Indication: Sarcoma metastatic
     Dosage: 6 CYCLES
     Route: 042
     Dates: start: 20220211, end: 20220603
  2. YONDELIS [Suspect]
     Active Substance: TRABECTEDIN
     Route: 042
     Dates: start: 20221103
  3. DOXORUBICIN [Suspect]
     Active Substance: DOXORUBICIN
     Indication: Sarcoma metastatic
     Route: 042
     Dates: start: 20220211, end: 20220603
  4. PEGFILGRASTIM [Concomitant]
     Active Substance: PEGFILGRASTIM
     Dates: start: 20220210, end: 20220602

REACTIONS (1)
  - Lung opacity [Recovered/Resolved]

NARRATIVE: CASE EVENT DATE: 20220908
